FAERS Safety Report 5413223-X (Version None)
Quarter: 2007Q3

REPORT INFORMATION
  Report Type: 
  Country: None (occurrence: None)
  Receive Date: 20070814
  Receipt Date: 20070806
  Transmission Date: 20080115
  Serious: Yes (Hospitalization)
  Sender: FDA-Public Use
  Company Number: PHBS2007CH13098

PATIENT
  Age: 33 Year
  Sex: Male

DRUGS (3)
  1. CYCLOSPORINE [Suspect]
     Indication: RENAL TRANSPLANT
  2. AZATHIOPRINE [Suspect]
     Indication: RENAL TRANSPLANT
  3. STEROIDS NOS [Suspect]
     Indication: RENAL TRANSPLANT

REACTIONS (10)
  - BENIGN TUMOUR EXCISION [None]
  - BLOOD URIC ACID INCREASED [None]
  - CHONDROCALCINOSIS [None]
  - GOUT [None]
  - GOUTY TOPHUS [None]
  - JOINT DESTRUCTION [None]
  - JOINT EFFUSION [None]
  - JOINT SWELLING [None]
  - MASS [None]
  - PAIN [None]
